FAERS Safety Report 24559232 (Version 3)
Quarter: 2025Q1

REPORT INFORMATION
  Report Type: Report from Study
  Country: IT (occurrence: IT)
  Receive Date: 20241029
  Receipt Date: 20250213
  Transmission Date: 20250409
  Serious: Yes (Hospitalization)
  Sender: ABBVIE
  Company Number: None

PATIENT
  Age: 71 Year
  Sex: Female

DRUGS (4)
  1. VENETOCLAX [Suspect]
     Active Substance: VENETOCLAX
     Indication: Acute myeloid leukaemia
     Dosage: 1 CP/DIE
     Route: 048
     Dates: start: 20240618, end: 20240620
  2. Posaconazolo [Concomitant]
     Indication: Antifungal prophylaxis
     Dosage: 300 MG TWICE DAILY ON THE FIRST DAY, FOLLOWED BY 300 MG ONCE DAILY
     Route: 048
  3. Posaconazolo [Concomitant]
     Indication: Antifungal prophylaxis
     Route: 048
  4. AZACITIDINE [Suspect]
     Active Substance: AZACITIDINE
     Indication: Acute myeloid leukaemia
     Dosage: 75 MG/MQ/DIE
     Route: 058
     Dates: start: 20240618, end: 20240620

REACTIONS (1)
  - Clostridium difficile infection [Recovered/Resolved]

NARRATIVE: CASE EVENT DATE: 20240620
